FAERS Safety Report 8372324-7 (Version None)
Quarter: 2012Q2

REPORT INFORMATION
  Report Type: 
  Country: None (occurrence: None)
  Receive Date: 20120521
  Receipt Date: 20120520
  Transmission Date: 20120825
  Serious: Yes (Other)
  Sender: FDA-Public Use
  Company Number: US-PFIZER INC-2012121704

PATIENT
  Sex: Female
  Weight: 65.76 kg

DRUGS (7)
  1. REMERON [Concomitant]
     Dosage: 30 MG, DAILY
  2. CHANTIX [Suspect]
     Indication: SMOKING CESSATION THERAPY
     Dosage: 0.5 MG, DAILY
     Dates: start: 20120517, end: 20120501
  3. CYMBALTA [Concomitant]
     Indication: DEPRESSION
     Dosage: 30 MG, DAILY
  4. CHANTIX [Suspect]
     Dosage: UNK
     Dates: start: 20120501
  5. NAPROXEN [Concomitant]
     Indication: PAIN
     Dosage: 500 MG TWO TO THREE TIMES A DAY AS NEEDED
  6. ULTRAM [Suspect]
     Dosage: UNK
  7. BACLOFEN [Concomitant]
     Indication: PAIN
     Dosage: 10 MG TWO TO THREE TIMES A DAY AS NEEDED

REACTIONS (3)
  - OEDEMA PERIPHERAL [None]
  - HYPERSENSITIVITY [None]
  - NAUSEA [None]
